FAERS Safety Report 15941104 (Version 4)
Quarter: 2019Q2

REPORT INFORMATION
  Report Type: Spontaneous
  Country: US (occurrence: US)
  Receive Date: 20190208
  Receipt Date: 20190520
  Transmission Date: 20190711
  Serious: Yes (Death, Hospitalization, Other)
  Sender: FDA-Public Use
  Company Number: US-ASTRAZENECA-2018SF14359

PATIENT
  Age: 27082 Day
  Sex: Male

DRUGS (10)
  1. PREVACID [Suspect]
     Active Substance: LANSOPRAZOLE
     Route: 065
  2. LOSARTAN. [Concomitant]
     Active Substance: LOSARTAN
  3. LASIX [Concomitant]
     Active Substance: FUROSEMIDE
  4. PRILOSEC [Suspect]
     Active Substance: OMEPRAZOLE MAGNESIUM
     Route: 048
  5. PREVACID 24 HR [Suspect]
     Active Substance: LANSOPRAZOLE
     Route: 065
  6. NEXIUM [Suspect]
     Active Substance: ESOMEPRAZOLE MAGNESIUM
     Route: 048
  7. CARVEDIOL [Concomitant]
     Active Substance: CARVEDILOL
  8. NEXIUM 24HR [Suspect]
     Active Substance: ESOMEPRAZOLE MAGNESIUM
     Route: 048
  9. PRILOSEC OTC [Suspect]
     Active Substance: OMEPRAZOLE MAGNESIUM
     Route: 048
  10. METHIMAZOLE. [Concomitant]
     Active Substance: METHIMAZOLE

REACTIONS (5)
  - Renal failure [Unknown]
  - Acute kidney injury [Unknown]
  - Renal injury [Unknown]
  - Chronic kidney disease [Unknown]
  - End stage renal disease [Unknown]

NARRATIVE: CASE EVENT DATE: 20150111
